FAERS Safety Report 8547179-8 (Version None)
Quarter: 2012Q3

REPORT INFORMATION
  Report Type: 
  Country: None (occurrence: None)
  Receive Date: 20120727
  Receipt Date: 20120222
  Transmission Date: 20120928
  Serious: No
  Sender: FDA-Public Use
  Company Number: US-ASTRAZENECA-2012SE12828

PATIENT
  Age: 49 Year
  Sex: Female

DRUGS (3)
  1. SEROQUEL [Suspect]
     Indication: BIPOLAR DISORDER
     Route: 048
  2. PREDNISONE [Interacting]
     Indication: NEPHROTIC SYNDROME
     Route: 065
  3. SEROQUEL [Interacting]
     Route: 048

REACTIONS (2)
  - DRUG INTERACTION [None]
  - BIPOLAR DISORDER [None]
